FAERS Safety Report 8544854-6 (Version None)
Quarter: 2012Q3

REPORT INFORMATION
  Report Type: 
  Country: None (occurrence: None)
  Receive Date: 20120727
  Receipt Date: 20120723
  Transmission Date: 20120928
  Serious: Yes (Hospitalization)
  Sender: FDA-Public Use
  Company Number: GB-ROCHE-1091577

PATIENT
  Sex: Male
  Weight: 80.8 kg

DRUGS (4)
  1. XELODA [Suspect]
     Indication: GASTRIC CANCER
     Route: 048
     Dates: start: 20120119
  2. CISPLATIN [Suspect]
     Indication: GASTRIC CANCER
     Route: 042
     Dates: start: 20120119
  3. AVASTIN [Suspect]
     Indication: GASTRIC CANCER
     Route: 042
     Dates: start: 20120119
  4. EPIRUBICIN HYDROCHLORIDE [Suspect]
     Indication: GASTRIC CANCER
     Route: 042
     Dates: start: 20120119

REACTIONS (1)
  - ANASTOMOTIC LEAK [None]
